FAERS Safety Report 14334888 (Version 1)
Quarter: 2017Q4

REPORT INFORMATION
  Report Type: Spontaneous
  Country: IT (occurrence: IT)
  Receive Date: 20171229
  Receipt Date: 20171229
  Transmission Date: 20180321
  Serious: Yes (Hospitalization)
  Sender: FDA-Public Use
  Company Number: IT-ASTRAZENECA-2017SF32220

PATIENT
  Age: 90 Year
  Sex: Female

DRUGS (9)
  1. TALOFEN [Concomitant]
     Active Substance: PROMAZINE HYDROCHLORIDE
  2. ENAPREN [Concomitant]
     Active Substance: ENALAPRIL MALEATE
  3. MINIAS [Suspect]
     Active Substance: LORMETAZEPAM
     Indication: INSOMNIA
     Route: 048
     Dates: start: 20170430, end: 20170430
  4. COUMADIN [Concomitant]
     Active Substance: WARFARIN SODIUM
  5. PEPTAZOL [Concomitant]
     Active Substance: PANTOPRAZOLE SODIUM
  6. EFEXOR [Concomitant]
     Active Substance: VENLAFAXINE HYDROCHLORIDE
  7. MODURETIC 5-50 [Concomitant]
     Active Substance: AMILORIDE HYDROCHLORIDE\HYDROCHLOROTHIAZIDE
  8. DILZENE [Concomitant]
     Active Substance: DILTIAZEM HYDROCHLORIDE
  9. SEROQUEL [Suspect]
     Active Substance: QUETIAPINE FUMARATE
     Route: 048

REACTIONS (1)
  - Head injury [Recovering/Resolving]

NARRATIVE: CASE EVENT DATE: 20170430
